FAERS Safety Report 17018044 (Version 1)
Quarter: 2019Q4

REPORT INFORMATION
  Report Type: Spontaneous
  Country: US (occurrence: US)
  Receive Date: 20191111
  Receipt Date: 20191111
  Transmission Date: 20200122
  Serious: No
  Sender: FDA-Public Use
  Company Number: US-TEVA-2019-US-1135160

PATIENT
  Age: 67 Year
  Sex: Male

DRUGS (1)
  1. DEXMEDETOMIDINE. [Suspect]
     Active Substance: DEXMEDETOMIDINE
     Indication: ALCOHOL WITHDRAWAL SYNDROME
     Route: 065

REACTIONS (2)
  - Hypernatraemia [Recovered/Resolved]
  - Polyuria [Recovered/Resolved]
